FAERS Safety Report 8117434-4 (Version None)
Quarter: 2012Q1

REPORT INFORMATION
  Report Type: 
  Country: None (occurrence: None)
  Receive Date: 20120207
  Receipt Date: 20120123
  Transmission Date: 20120608
  Serious: Yes (Disabling)
  Sender: FDA-Public Use
  Company Number: FI-RANBAXY-2012RR-52369

PATIENT
  Sex: Male

DRUGS (6)
  1. TREDAPTIVE [Concomitant]
     Indication: LIPIDS ABNORMAL
     Dosage: UNK
     Route: 065
  2. CRESTOR [Concomitant]
     Indication: COMBINED HYPERLIPIDAEMIA
     Dosage: UNK
     Route: 065
  3. GLUCOSAMINE HYDROCHLORIDE [Concomitant]
     Indication: PRODUCT USED FOR UNKNOWN INDICATION
     Dosage: UNK
     Route: 065
  4. SIMVASTATIN [Suspect]
     Indication: COMBINED HYPERLIPIDAEMIA
     Dosage: UNK
     Route: 048
  5. FENOFIBRATE [Suspect]
     Indication: COMBINED HYPERLIPIDAEMIA
     Dosage: UNK
     Route: 048
  6. SALMETEROL XINAFOATE/FLUTICASONE PROPIONATE [Concomitant]
     Indication: CHRONIC OBSTRUCTIVE PULMONARY DISEASE
     Dosage: UNK
     Route: 055

REACTIONS (4)
  - DRUG INTERACTION [None]
  - PERONEAL NERVE PALSY [None]
  - PARAPARESIS [None]
  - POLYNEUROPATHY [None]
